FAERS Safety Report 23241557 (Version 2)
Quarter: 2023Q4

REPORT INFORMATION
  Report Type: Report from Study
  Country: BG (occurrence: BG)
  Receive Date: 20231129
  Receipt Date: 20231219
  Transmission Date: 20240110
  Serious: Yes (Other)
  Sender: FDA-Public Use
  Company Number: BG-ABBVIE-5511118

PATIENT
  Age: 54 Year
  Sex: Male

DRUGS (1)
  1. RINVOQ [Suspect]
     Active Substance: UPADACITINIB
     Indication: Ankylosing spondylitis
     Dosage: 15 MILLIGRAM
     Route: 048
     Dates: start: 202205

REACTIONS (1)
  - Peripheral artery thrombosis [Unknown]
